FAERS Safety Report 17450327 (Version 1)
Quarter: 2020Q1

REPORT INFORMATION
  Report Type: Spontaneous
  Country: US (occurrence: US)
  Receive Date: 20200224
  Receipt Date: 20200224
  Transmission Date: 20200409
  Serious: Yes (Hospitalization, Other)
  Sender: FDA-Public Use
  Company Number: US-GLAXOSMITHKLINE-US2020GSK029709

PATIENT
  Sex: Male

DRUGS (3)
  1. PREVACID [Suspect]
     Active Substance: LANSOPRAZOLE
     Indication: PRODUCT USED FOR UNKNOWN INDICATION
     Dosage: UNK
     Route: 065
  2. PANTOPRAZOLE [Suspect]
     Active Substance: PANTOPRAZOLE
     Indication: PRODUCT USED FOR UNKNOWN INDICATION
     Dosage: 40 MG
     Route: 065
     Dates: start: 20180424, end: 20180810
  3. PANTOPRAZOLE [Suspect]
     Active Substance: PANTOPRAZOLE
     Indication: GASTROOESOPHAGEAL REFLUX DISEASE
     Dosage: 40 MG
     Route: 065
     Dates: start: 20180810

REACTIONS (19)
  - Gastric cancer [Not Recovered/Not Resolved]
  - Abdominal pain [Unknown]
  - Stomach mass [Unknown]
  - Alopecia [Unknown]
  - Adenocarcinoma gastric [Unknown]
  - Depression [Unknown]
  - Abdominal pain upper [Unknown]
  - Gastric operation [Unknown]
  - Renal surgery [Unknown]
  - Intestinal metaplasia [Unknown]
  - Weight decreased [Unknown]
  - Lymphadenectomy [Unknown]
  - Gastrectomy [Unknown]
  - Renal injury [Unknown]
  - Dyspepsia [Unknown]
  - Haematuria [Unknown]
  - Amnesia [Unknown]
  - Gastric disorder [Unknown]
  - Chronic gastritis [Unknown]
